FAERS Safety Report 18331917 (Version 3)
Quarter: 2020Q4

REPORT INFORMATION
  Report Type: Spontaneous
  Country: US (occurrence: US)
  Receive Date: 20201001
  Receipt Date: 20201202
  Transmission Date: 20210113
  Serious: No
  Sender: FDA-Public Use
  Company Number: US-SHIRE-US202031796

PATIENT
  Sex: Female
  Weight: 70.3 kg

DRUGS (9)
  1. ACETAMINOPHEN. [Concomitant]
     Active Substance: ACETAMINOPHEN
     Indication: PRODUCT USED FOR UNKNOWN INDICATION
  2. DIPHENHYDRAMINE. [Concomitant]
     Active Substance: DIPHENHYDRAMINE
     Indication: PRODUCT USED FOR UNKNOWN INDICATION
  3. OXYCODONE [Concomitant]
     Active Substance: OXYCODONE
     Indication: GENERAL ANAESTHESIA
  4. GAMUNEX-C [Concomitant]
     Active Substance: HUMAN IMMUNOGLOBULIN G
     Indication: PRODUCT USED FOR UNKNOWN INDICATION
  5. HYDROCODONE [Concomitant]
     Active Substance: HYDROCODONE
     Indication: GENERAL ANAESTHESIA
  6. EPINEPHRINE. [Concomitant]
     Active Substance: EPINEPHRINE
     Indication: PRODUCT USED FOR UNKNOWN INDICATION
  7. LO LOESTRIN FE [Concomitant]
     Active Substance: ETHINYL ESTRADIOL\NORETHINDRONE ACETATE
     Indication: PRODUCT USED FOR UNKNOWN INDICATION
  8. CUVITRU [Suspect]
     Active Substance: HUMAN IMMUNOGLOBULIN G
     Indication: IMMUNODEFICIENCY COMMON VARIABLE
     Dosage: 20 GRAM, 1X/2WKS
     Route: 058
     Dates: start: 20200425
  9. LMX4 [Concomitant]
     Active Substance: LIDOCAINE
     Indication: PRODUCT USED FOR UNKNOWN INDICATION

REACTIONS (4)
  - Sinusitis [Unknown]
  - Infusion related reaction [Unknown]
  - Ovarian cyst [Unknown]
  - Infusion site pain [Unknown]
